FAERS Safety Report 7446020-4 (Version None)
Quarter: 2011Q2

REPORT INFORMATION
  Report Type: 
  Country: None (occurrence: None)
  Receive Date: 20110429
  Receipt Date: 20110420
  Transmission Date: 20111010
  Serious: Yes (Other)
  Sender: FDA-Public Use
  Company Number: DK-GENZYME-CLOF-1001464

PATIENT
  Sex: Male

DRUGS (45)
  1. EVOLTRA [Suspect]
     Dosage: 20 MG/M2, QDX5
     Route: 042
     Dates: start: 20101227, end: 20101231
  2. VOGALENE [Concomitant]
     Dosage: 30 MG UNK
     Route: 048
     Dates: start: 20101227, end: 20101231
  3. MEROPENEM [Concomitant]
     Indication: PRODUCT USED FOR UNKNOWN INDICATION
     Dosage: 2000 MG, UNK
     Route: 042
     Dates: start: 20101123, end: 20101129
  4. PETIDIN SAD [Concomitant]
     Indication: PRODUCT USED FOR UNKNOWN INDICATION
     Dosage: 20 MG X 1
     Route: 042
     Dates: start: 20101123, end: 20101129
  5. PRIMPERAN TAB [Concomitant]
     Dosage: 10 MG QD
     Route: 042
     Dates: start: 20101123, end: 20101129
  6. VANCOMYCIN [Concomitant]
     Indication: PRODUCT USED FOR UNKNOWN INDICATION
     Dosage: 1 G X 2
     Route: 042
     Dates: start: 20101124, end: 20101129
  7. DALACIN [Concomitant]
     Indication: PRODUCT USED FOR UNKNOWN INDICATION
     Dosage: 600 MG X 3
     Route: 048
     Dates: start: 20101129, end: 20101204
  8. DILTIAZEM HCL [Concomitant]
     Indication: PRODUCT USED FOR UNKNOWN INDICATION
     Dosage: 2 APPLICATIONS
     Route: 065
     Dates: start: 20110107, end: 20110204
  9. ONDANSETRON [Concomitant]
     Indication: PRODUCT USED FOR UNKNOWN INDICATION
     Dosage: 16 MG, UNK
     Route: 048
     Dates: start: 20101108, end: 20101115
  10. SOLU-MEDROL [Concomitant]
     Indication: PRODUCT USED FOR UNKNOWN INDICATION
     Dosage: 40 MG, UNK
     Route: 042
     Dates: start: 20101123, end: 20101129
  11. COLIMYCIN [Concomitant]
     Dosage: 6 MIE X 1
     Route: 042
     Dates: start: 20101123, end: 20101123
  12. CETIRIZINE HCL [Concomitant]
     Indication: PRODUCT USED FOR UNKNOWN INDICATION
     Dosage: 10 MG, ONCE
     Route: 048
     Dates: start: 20101230, end: 20101231
  13. TAZOBAC [Concomitant]
     Indication: PRODUCT USED FOR UNKNOWN INDICATION
     Dosage: 1 OTHER X 3
     Route: 042
     Dates: start: 20110105, end: 20110106
  14. FLUCONAZOLE [Concomitant]
     Dosage: 400 MG, QD
     Route: 048
     Dates: start: 20110113, end: 20110204
  15. MEROPENEM [Concomitant]
     Dosage: 1000 MG, TID
     Route: 042
     Dates: start: 20110106, end: 20110113
  16. PINEX [Concomitant]
     Indication: PRODUCT USED FOR UNKNOWN INDICATION
     Dosage: 1000 MG X 1
     Route: 048
     Dates: start: 20101110, end: 20101113
  17. VOGALENE [Concomitant]
     Indication: PRODUCT USED FOR UNKNOWN INDICATION
     Dosage: 30 MG UNK
     Route: 048
     Dates: start: 20101108, end: 20101115
  18. TRANEXAMSYRE [Concomitant]
     Indication: PRODUCT USED FOR UNKNOWN INDICATION
     Dosage: 1000 MG X 4
     Route: 042
     Dates: start: 20101114, end: 20101115
  19. FLUCONAZOLE [Concomitant]
     Indication: PRODUCT USED FOR UNKNOWN INDICATION
     Dosage: 400 MG, QD
     Route: 048
     Dates: start: 20101119, end: 20101222
  20. SOLU-MEDROL [Concomitant]
     Dosage: 20 MG, QD
     Route: 042
     Dates: start: 20101231, end: 20101231
  21. PROCTOSEDYL [Concomitant]
     Indication: PRODUCT USED FOR UNKNOWN INDICATION
     Dosage: 1 OTHER X 4
     Route: 054
     Dates: start: 20110105, end: 20110204
  22. KLYX [Concomitant]
     Indication: PRODUCT USED FOR UNKNOWN INDICATION
     Dosage: 1 OTHER X 1
     Route: 054
     Dates: start: 20110106, end: 20110113
  23. TOILAX [Concomitant]
     Dosage: 5 MG, QD
     Route: 048
     Dates: start: 20110103
  24. TRADOLAN [Concomitant]
     Indication: PRODUCT USED FOR UNKNOWN INDICATION
     Dosage: 50 MG X 4
     Route: 048
     Dates: start: 20101112, end: 20101116
  25. TOILAX [Concomitant]
     Indication: PRODUCT USED FOR UNKNOWN INDICATION
     Dosage: 5 MG QD
     Route: 048
     Dates: start: 20101112, end: 20101123
  26. CIPROFLOXACIN [Concomitant]
     Dosage: 500 MG, BID
     Route: 048
     Dates: start: 20101129, end: 20101204
  27. COLIMYCIN [Concomitant]
     Indication: PRODUCT USED FOR UNKNOWN INDICATION
     Dosage: 2 MIE X 3
     Route: 042
     Dates: start: 20101123, end: 20101124
  28. GENTAMICIN [Concomitant]
     Indication: PRODUCT USED FOR UNKNOWN INDICATION
     Dosage: 240 MG X 1
     Route: 042
     Dates: start: 20110106, end: 20110113
  29. IMOCLONE [Concomitant]
     Indication: PRODUCT USED FOR UNKNOWN INDICATION
     Dosage: 7.5 MG QD
     Route: 048
     Dates: start: 20101110, end: 20101222
  30. MEROPENEM [Concomitant]
     Indication: PRODUCT USED FOR UNKNOWN INDICATION
     Dosage: 1000 MG X 3
     Route: 042
     Dates: start: 20101123, end: 20101123
  31. ACICLODAN [Concomitant]
     Indication: PRODUCT USED FOR UNKNOWN INDICATION
     Dosage: 800 MG X3
     Route: 048
     Dates: start: 20101126, end: 20101129
  32. DALACIN [Concomitant]
     Dosage: 600 MG, TID
     Route: 048
     Dates: start: 20110113, end: 20110204
  33. MORFIN SAD [Concomitant]
     Indication: PRODUCT USED FOR UNKNOWN INDICATION
     Dosage: 5 MG X 1
     Route: 048
     Dates: start: 20101112, end: 20101115
  34. EVOLTRA [Suspect]
     Dosage: 20 MG/M2, UNK
     Route: 042
     Dates: start: 20101108, end: 20101108
  35. TAVEGYL [Concomitant]
     Indication: PRODUCT USED FOR UNKNOWN INDICATION
     Dosage: 1 MG X 1
     Route: 042
     Dates: start: 20101123, end: 20101129
  36. MOXALOLE [Concomitant]
     Dosage: 1 STK QD
     Route: 048
     Dates: start: 20110107, end: 20110113
  37. TRANDOPLAN [Concomitant]
     Indication: PRODUCT USED FOR UNKNOWN INDICATION
     Dosage: 50 MG, QD
     Route: 048
     Dates: start: 20101118
  38. EVOLTRA [Suspect]
     Indication: MYELODYSPLASTIC SYNDROME
     Dosage: 20 MG/M2, QDX5
     Route: 042
     Dates: start: 20101110, end: 20101114
  39. PRIMPERAN TAB [Concomitant]
     Indication: PRODUCT USED FOR UNKNOWN INDICATION
     Dosage: 30 MG UNK
     Route: 048
     Dates: start: 20101108, end: 20101115
  40. MOXALOLE [Concomitant]
     Indication: PRODUCT USED FOR UNKNOWN INDICATION
     Dosage: 1 OTHER X 2
     Route: 048
     Dates: start: 20101111, end: 20101129
  41. CIPROFLOXACIN [Concomitant]
     Indication: PRODUCT USED FOR UNKNOWN INDICATION
     Dosage: 500 MG, BID
     Dates: start: 20101119, end: 20101123
  42. BIOCLAVID [Concomitant]
     Indication: PRODUCT USED FOR UNKNOWN INDICATION
     Dosage: UNK X 3
     Route: 048
     Dates: start: 20101119, end: 20101123
  43. GLUKOSE ISOTONISK SAD [Concomitant]
     Indication: PRODUCT USED FOR UNKNOWN INDICATION
     Dosage: 1000 ML, ONCE
     Route: 042
     Dates: start: 20110105, end: 20110105
  44. ZELITREX [Concomitant]
     Indication: PRODUCT USED FOR UNKNOWN INDICATION
     Dosage: 500 MG, BID
     Route: 048
     Dates: start: 20110125, end: 20110204
  45. ONDANSETRON [Concomitant]
     Dosage: 16 MG, QD
     Route: 048
     Dates: start: 20101227, end: 20110101

REACTIONS (3)
  - PANCYTOPENIA [None]
  - NEUTROPENIA [None]
  - THROMBOCYTOPENIA [None]
